FAERS Safety Report 9563764 (Version 1)
Quarter: 2013Q3

REPORT INFORMATION
  Report Type: Spontaneous
  Country: US (occurrence: None)
  Receive Date: 20130926
  Receipt Date: 20130926
  Transmission Date: 20140515
  Serious: Yes (Other)
  Sender: FDA-Public Use
  Company Number: DAV-AE-ALP-13-24

PATIENT
  Age: 47 Year
  Sex: Female

DRUGS (4)
  1. ALPRAZOLAM [Suspect]
     Indication: ANXIETY
     Dosage: 1 TAB
     Route: 048
     Dates: start: 20130923
  2. GABAPENTIN [Concomitant]
  3. DIVIGEL [Concomitant]
  4. IBUPROFEN [Concomitant]

REACTIONS (4)
  - Oral discomfort [None]
  - Lip swelling [None]
  - Paraesthesia oral [None]
  - Product substitution issue [None]
